FAERS Safety Report 26165496 (Version 2)
Quarter: 2025Q4

REPORT INFORMATION
  Report Type: Report from Study
  Country: CO (occurrence: CO)
  Receive Date: 20251216
  Receipt Date: 20251229
  Transmission Date: 20260118
  Serious: Yes (Hospitalization, Other)
  Sender: TAKEDA
  Company Number: CO-TAKEDA-2025TUS075114

PATIENT
  Age: 51 Year
  Sex: Female
  Weight: 80 kg

DRUGS (2)
  1. VEDOLIZUMAB [Suspect]
     Active Substance: VEDOLIZUMAB
     Indication: Colitis ulcerative
     Dosage: 300 MILLIGRAM, Q2WEEKS
     Dates: start: 20250724
  2. VEDOLIZUMAB [Suspect]
     Active Substance: VEDOLIZUMAB
     Dosage: 300 MILLIGRAM

REACTIONS (10)
  - Haematochezia [Unknown]
  - Abdominal pain [Unknown]
  - Influenza like illness [Unknown]
  - Discomfort [Unknown]
  - Weight decreased [Unknown]
  - Faeces soft [Unknown]
  - Abdominal distension [Unknown]
  - Flatulence [Unknown]
  - Arthralgia [Unknown]
  - Fatigue [Unknown]

NARRATIVE: CASE EVENT DATE: 20250818
